FAERS Safety Report 6336917-0 (Version None)
Quarter: 2009Q3

REPORT INFORMATION
  Report Type: 
  Country: None (occurrence: None)
  Receive Date: 20090901
  Receipt Date: 20090824
  Transmission Date: 20100115
  Serious: Yes (Hospitalization)
  Sender: FDA-Public Use
  Company Number: US-CELGENEUS-163-20785-09081804

PATIENT
  Sex: Female

DRUGS (10)
  1. THALOMID [Suspect]
     Route: 048
     Dates: start: 20090601
  2. THALOMID [Suspect]
     Route: 048
     Dates: start: 20090501
  3. THALOMID [Suspect]
     Route: 048
     Dates: start: 20071001
  4. DEXAMETHASONE [Concomitant]
     Indication: DRUG USE FOR UNKNOWN INDICATION
     Route: 065
  5. MEDICATION FOR  HYPERLIPIDEMIA [Concomitant]
     Route: 065
  6. ATENOLOL [Concomitant]
     Indication: DRUG USE FOR UNKNOWN INDICATION
     Route: 065
  7. NEURONTIN [Concomitant]
     Indication: DRUG USE FOR UNKNOWN INDICATION
     Route: 065
  8. ANTIDEPRESSANTS [Concomitant]
     Indication: DEPRESSION
     Route: 065
  9. CALCIUM [Concomitant]
     Indication: DRUG USE FOR UNKNOWN INDICATION
     Route: 065
  10. COUMADIN [Concomitant]
     Indication: DRUG USE FOR UNKNOWN INDICATION
     Route: 065

REACTIONS (1)
  - SPINAL COLUMN STENOSIS [None]
